FAERS Safety Report 4521313-9 (Version None)
Quarter: 2004Q4

REPORT INFORMATION
  Report Type: 
  Country: None (occurrence: None)
  Receive Date: 20041208
  Receipt Date: 20041022
  Transmission Date: 20050328
  Serious: Yes (Other)
  Sender: FDA-Public Use
  Company Number: PHBS2004JP14252

PATIENT
  Age: 52 Year
  Sex: Male

DRUGS (3)
  1. DIOVAN [Suspect]
     Indication: HYPERTENSION
     Dosage: 80 MG, QD
     Route: 048
     Dates: start: 20030401, end: 20040806
  2. AMLODIPINE [Concomitant]
     Dosage: 5 MG, UNK
     Route: 048
     Dates: start: 20030401
  3. ABILIT [Concomitant]
     Dosage: 150 MG, UNK
     Route: 048

REACTIONS (4)
  - APATHY [None]
  - DEPRESSED MOOD [None]
  - DEPRESSION [None]
  - SLEEP DISORDER [None]
